FAERS Safety Report 5409635-0 (Version None)
Quarter: 2007Q3

REPORT INFORMATION
  Report Type: 
  Country: None (occurrence: None)
  Receive Date: 20070807
  Receipt Date: 20070807
  Transmission Date: 20080115
  Serious: Yes (Hospitalization)
  Sender: FDA-Public Use
  Company Number: None

PATIENT
  Age: 53 Year
  Sex: Female
  Weight: 79 kg

DRUGS (15)
  1. FLUCONAZOLE [Suspect]
     Indication: CANDIDIASIS
     Dosage: 400 MG DAILY IV
     Route: 042
     Dates: start: 20070721, end: 20070722
  2. COMBIVENT [Concomitant]
  3. PERCOCET [Concomitant]
  4. AMIODARONE HCL [Concomitant]
  5. FERROUS SULFATE [Concomitant]
  6. FUROSEMIDE [Concomitant]
  7. LANTUS [Concomitant]
  8. HUMALOG [Concomitant]
  9. METOPROLOL SUCCINATE [Concomitant]
  10. QUETIAPINE FUMARATE [Concomitant]
  11. WARFARIN SODIUM [Concomitant]
  12. DIPHENHYDRAMINE HCL [Concomitant]
  13. MORPHINE [Concomitant]
  14. SIMETHICONE [Concomitant]
  15. D5W/NS [Concomitant]

REACTIONS (3)
  - ABDOMINAL PAIN [None]
  - FUNGAL INFECTION [None]
  - INTERNATIONAL NORMALISED RATIO INCREASED [None]
